FAERS Safety Report 17487078 (Version 1)
Quarter: 2020Q1

REPORT INFORMATION
  Report Type: Spontaneous
  Country: DK (occurrence: DK)
  Receive Date: 20200303
  Receipt Date: 20200303
  Transmission Date: 20200409
  Serious: Yes (Other)
  Sender: FDA-Public Use
  Company Number: DK-ALLERGAN-2008802US

PATIENT
  Sex: Female

DRUGS (2)
  1. VISTABEL [Suspect]
     Active Substance: BOTULINUM TOXIN TYPE A
     Indication: SKIN WRINKLING
     Dosage: 20 UNITS, SINGLE
     Dates: start: 20180620, end: 20180620
  2. VISTABEL [Suspect]
     Active Substance: BOTULINUM TOXIN TYPE A
     Indication: SKIN WRINKLING
     Dosage: 8 UNITS, SINGLE
     Dates: start: 20180620, end: 20180620

REACTIONS (6)
  - Myositis [Recovering/Resolving]
  - General physical condition abnormal [Unknown]
  - Shock symptom [Unknown]
  - Fear [Unknown]
  - Asthenopia [Recovering/Resolving]
  - Exophthalmos [Recovering/Resolving]

NARRATIVE: CASE EVENT DATE: 2018
